FAERS Safety Report 9031488 (Version 2)
Quarter: 2013Q1

REPORT INFORMATION
  Report Type: Report from Study
  Country: DE (occurrence: DE)
  Receive Date: 20130124
  Receipt Date: 20130228
  Transmission Date: 20140127
  Serious: Yes (Death, Life-Threatening, Hospitalization)
  Sender: FDA-Public Use
  Company Number: DE-PFIZER INC-2013016658

PATIENT
  Age: 48 Year
  Sex: Male
  Weight: 66.6 kg

DRUGS (9)
  1. IRINOTECAN HCL [Suspect]
     Indication: COLORECTAL CANCER METASTATIC
     Dosage: 180 MG/M2, ON DAY ONE EVERY 14 DAYS
     Route: 042
     Dates: start: 20121024, end: 20121218
  2. FOLINIC ACID [Suspect]
     Indication: COLORECTAL CANCER METASTATIC
     Dosage: 400 MG/M2, ON DAY ONE EVERY 14 DAYS
     Route: 042
     Dates: start: 20121024, end: 20121218
  3. FLUOROURACIL [Suspect]
     Indication: COLORECTAL CANCER METASTATIC
     Dosage: 400 MG/M2 BOLUS ON DAY ONE EVERY 14 DAYS
     Route: 040
     Dates: start: 20121024, end: 20121218
  4. FLUOROURACIL [Suspect]
     Dosage: 2400 MG/M2, DAYS ONE AND TWO EVERY 14 DAYS
     Route: 042
     Dates: start: 20121024, end: 20121218
  5. BLINDED THERAPY [Suspect]
     Indication: COLORECTAL CANCER METASTATIC
     Dosage: EVERY 14 DAYS
     Dates: start: 20121024, end: 20121218
  6. LOPERAMID [Concomitant]
     Indication: DIARRHOEA
     Dosage: UNK
     Dates: start: 20121107
  7. PANTOZOL [Concomitant]
     Indication: VOMITING
     Dosage: UNK
     Dates: start: 20121204
  8. BUSCOPAN [Concomitant]
     Indication: CHOLINERGIC SYNDROME
     Dosage: UNK
     Dates: start: 20121205
  9. FORTIMEL [Concomitant]
     Indication: DECREASED APPETITE
     Dosage: UNK
     Dates: start: 20121223

REACTIONS (3)
  - Disease progression [Fatal]
  - Colorectal cancer metastatic [Fatal]
  - Bile duct stenosis [Recovered/Resolved]
